FAERS Safety Report 25721756 (Version 1)
Quarter: 2025Q3

REPORT INFORMATION
  Report Type: Spontaneous
  Country: JP (occurrence: JP)
  Receive Date: 20250825
  Receipt Date: 20250825
  Transmission Date: 20251021
  Serious: Yes (Death)
  Sender: MYLAN
  Company Number: JP-VIATRISJAPAN-2025M1070788AA

PATIENT
  Age: 87 Year
  Sex: Male

DRUGS (12)
  1. VENLAFAXINE HYDROCHLORIDE [Suspect]
     Active Substance: VENLAFAXINE HYDROCHLORIDE
     Indication: Anxiety
     Dosage: 37.5 MILLIGRAM, QD
     Dates: start: 20250802, end: 20250807
  2. VENLAFAXINE HYDROCHLORIDE [Suspect]
     Active Substance: VENLAFAXINE HYDROCHLORIDE
     Indication: Abulia
     Dosage: 37.5 MILLIGRAM, QD
     Route: 048
     Dates: start: 20250802, end: 20250807
  3. VENLAFAXINE HYDROCHLORIDE [Suspect]
     Active Substance: VENLAFAXINE HYDROCHLORIDE
     Dosage: 37.5 MILLIGRAM, QD
     Route: 048
     Dates: start: 20250802, end: 20250807
  4. VENLAFAXINE HYDROCHLORIDE [Suspect]
     Active Substance: VENLAFAXINE HYDROCHLORIDE
     Dosage: 37.5 MILLIGRAM, QD
     Dates: start: 20250802, end: 20250807
  5. LUDIOMIL [Concomitant]
     Active Substance: MAPROTILINE HYDROCHLORIDE
     Indication: Depression
  6. LUDIOMIL [Concomitant]
     Active Substance: MAPROTILINE HYDROCHLORIDE
  7. LUDIOMIL [Concomitant]
     Active Substance: MAPROTILINE HYDROCHLORIDE
     Route: 065
  8. LUDIOMIL [Concomitant]
     Active Substance: MAPROTILINE HYDROCHLORIDE
     Route: 065
  9. LUDIOMIL [Concomitant]
     Active Substance: MAPROTILINE HYDROCHLORIDE
  10. LUDIOMIL [Concomitant]
     Active Substance: MAPROTILINE HYDROCHLORIDE
  11. LUDIOMIL [Concomitant]
     Active Substance: MAPROTILINE HYDROCHLORIDE
     Route: 065
  12. LUDIOMIL [Concomitant]
     Active Substance: MAPROTILINE HYDROCHLORIDE
     Route: 065

REACTIONS (1)
  - Acute myocardial infarction [Fatal]

NARRATIVE: CASE EVENT DATE: 20250807
